FAERS Safety Report 8593499-0 (Version None)
Quarter: 2012Q3

REPORT INFORMATION
  Report Type: 
  Country: None (occurrence: None)
  Receive Date: 20120814
  Receipt Date: 20120727
  Transmission Date: 20120928
  Serious: No
  Sender: FDA-Public Use
  Company Number: US-ASTRAZENECA-2012SE53745

PATIENT
  Age: 60 Year
  Sex: Female

DRUGS (2)
  1. NEXIUM [Concomitant]
  2. CRESTOR [Suspect]
     Route: 048

REACTIONS (1)
  - GASTROOESOPHAGEAL REFLUX DISEASE [None]
